FAERS Safety Report 20830526 (Version 3)
Quarter: 2022Q2

REPORT INFORMATION
  Report Type: Spontaneous
  Country: US (occurrence: US)
  Receive Date: 20220514
  Receipt Date: 20220627
  Transmission Date: 20220721
  Serious: No
  Sender: FDA-Public Use
  Company Number: US-JNJFOC-20220523361

PATIENT
  Age: 70 Year
  Sex: Male
  Weight: 98.064 kg

DRUGS (6)
  1. RISPERDAL CONSTA [Suspect]
     Active Substance: RISPERIDONE
     Indication: Drug therapy
     Dosage: THERAPY STOP DATE 24/OCT/2022
     Route: 030
     Dates: start: 20220427
  2. RISPERDAL CONSTA [Suspect]
     Active Substance: RISPERIDONE
     Indication: Bipolar I disorder
  3. RISPERDAL CONSTA [Suspect]
     Active Substance: RISPERIDONE
  4. RISPERDAL CONSTA [Suspect]
     Active Substance: RISPERIDONE
  5. BISACODYL [Concomitant]
     Active Substance: BISACODYL
     Indication: Constipation
     Dosage: AT 8 PM
     Route: 065
     Dates: start: 20210128
  6. DIVALPROEX SODIUM [Concomitant]
     Active Substance: DIVALPROEX SODIUM
     Indication: Bipolar I disorder
     Route: 065
     Dates: start: 20220331

REACTIONS (2)
  - Inappropriate schedule of product administration [Unknown]
  - Syringe issue [Unknown]

NARRATIVE: CASE EVENT DATE: 20220511
